FAERS Safety Report 23987336 (Version 2)
Quarter: 2024Q3

REPORT INFORMATION
  Report Type: Spontaneous
  Country: CA (occurrence: CA)
  Receive Date: 20240618
  Receipt Date: 20240701
  Transmission Date: 20241017
  Serious: Yes (Other)
  Sender: SANDOZ
  Company Number: CA-002147023-NVSC2023CA130973

PATIENT
  Sex: Female

DRUGS (3)
  1. PIRFENIDONE [Suspect]
     Active Substance: PIRFENIDONE
     Indication: Idiopathic pulmonary fibrosis
     Dosage: 267 MG, TID
     Route: 048
     Dates: start: 20230531
  2. PIRFENIDONE [Suspect]
     Active Substance: PIRFENIDONE
     Dosage: 534 MG, TID (2 TABS OF 267 MG)
     Route: 065
  3. RITUXIMAB [Suspect]
     Active Substance: RITUXIMAB
     Indication: Idiopathic pulmonary fibrosis
     Dosage: 267 MG, TID
     Route: 048
     Dates: start: 20230531

REACTIONS (2)
  - Pyelonephritis [Unknown]
  - Dizziness [Unknown]
